FAERS Safety Report 5281993-X (Version None)
Quarter: 2007Q1

REPORT INFORMATION
  Report Type: 
  Country: None (occurrence: None)
  Receive Date: 20070330
  Receipt Date: 20070326
  Transmission Date: 20070707
  Serious: Yes (Hospitalization)
  Sender: FDA-Public Use
  Company Number: CA-BOEHRINGER INGELHEIM PHARMACEUTICALS, INC.-2007-CN-00270CN

PATIENT
  Sex: Female

DRUGS (1)
  1. MICARDIS [Suspect]
     Dates: start: 20060309

REACTIONS (4)
  - PAIN IN EXTREMITY [None]
  - RENAL FAILURE [None]
  - SPINAL FRACTURE [None]
  - URINARY TRACT INFECTION [None]
